FAERS Safety Report 26042170 (Version 1)
Quarter: 2025Q4

REPORT INFORMATION
  Report Type: Spontaneous
  Country: US (occurrence: US)
  Receive Date: 20251113
  Receipt Date: 20251113
  Transmission Date: 20260118
  Serious: No
  Sender: PARATEK PHARMACEUTICALS
  Company Number: US-PARATEK PHARMACEUTICALS, INC.-2025PTK01263

PATIENT
  Age: 76 Year
  Sex: Male

DRUGS (2)
  1. OMADACYCLINE [Suspect]
     Active Substance: OMADACYCLINE
     Indication: Disseminated mycobacterium avium complex infection
     Dosage: UNK
     Dates: start: 202502, end: 2025
  2. OMADACYCLINE [Suspect]
     Active Substance: OMADACYCLINE
     Dosage: INCREASED DOSES
     Dates: start: 2025

REACTIONS (3)
  - Nausea [Unknown]
  - Vomiting [Unknown]
  - Drug ineffective for unapproved indication [Unknown]

NARRATIVE: CASE EVENT DATE: 20250101
